FAERS Safety Report 9506949 (Version 1)
Quarter: 2013Q3

REPORT INFORMATION
  Report Type: Spontaneous
  Country: CN (occurrence: CN)
  Receive Date: 20130909
  Receipt Date: 20130909
  Transmission Date: 20140515
  Serious: Yes (Other)
  Sender: FDA-Public Use
  Company Number: CN-ROCHE-1271259

PATIENT
  Age: 70 Year
  Sex: Female
  Weight: 37 kg

DRUGS (2)
  1. CAPECITABINE [Suspect]
     Indication: GASTRIC CANCER
     Route: 048
     Dates: start: 20120418, end: 20120419
  2. OXALIPLATIN [Suspect]
     Indication: GASTRIC CANCER
     Dosage: IVGTT
     Route: 065
     Dates: start: 20120417, end: 20120417

REACTIONS (2)
  - Tetany [Recovering/Resolving]
  - Confusional state [Recovering/Resolving]
